FAERS Safety Report 5672575-6 (Version None)
Quarter: 2008Q1

REPORT INFORMATION
  Report Type: 
  Country: None (occurrence: None)
  Receive Date: 20080317
  Receipt Date: 20080229
  Transmission Date: 20080703
  Serious: No
  Sender: FDA-Public Use
  Company Number: US022868

PATIENT
  Age: 57 Year
  Sex: Male

DRUGS (2)
  1. FENTORA [Suspect]
     Indication: PANCREATIC CARCINOMA
     Dosage: 200 UG BUCCAL
     Route: 002
     Dates: start: 20080227
  2. DURAGESIC-100 [Concomitant]

REACTIONS (1)
  - DRUG PRESCRIBING ERROR [None]
